FAERS Safety Report 17599966 (Version 1)
Quarter: 2020Q1

REPORT INFORMATION
  Report Type: Spontaneous
  Country: IT (occurrence: IT)
  Receive Date: 20200330
  Receipt Date: 20200330
  Transmission Date: 20200409
  Serious: Yes (Other)
  Sender: FDA-Public Use
  Company Number: IT-PFIZER INC-2020128908

PATIENT
  Age: 28 Year
  Sex: Male

DRUGS (2)
  1. ARTROTEC [Suspect]
     Active Substance: DICLOFENAC SODIUM
     Indication: SPONDYLITIS
     Dosage: 1 DF, 1X/DAY (STRENGTH: 50MG+200 MCG)
     Route: 048
     Dates: start: 20191227, end: 20200119
  2. FLEXIBAN [Suspect]
     Active Substance: CYCLOBENZAPRINE
     Indication: SPONDYLITIS
     Dosage: 1 DF, 1X/DAY
     Route: 048
     Dates: start: 20191227, end: 20200119

REACTIONS (2)
  - Haemoglobinaemia [Unknown]
  - Melaena [Recovering/Resolving]

NARRATIVE: CASE EVENT DATE: 20200119
